FAERS Safety Report 7319386-3 (Version None)
Quarter: 2011Q1

REPORT INFORMATION
  Report Type: 
  Country: None (occurrence: None)
  Receive Date: 20110228
  Receipt Date: 20100423
  Transmission Date: 20110831
  Serious: No
  Sender: FDA-Public Use
  Company Number: A0847375A

PATIENT
  Age: 54 Year
  Sex: Female

DRUGS (5)
  1. UNKNOWN MEDICATION [Concomitant]
  2. ASPIRIN [Concomitant]
  3. HYDROCHLOROTHIAZIDE [Concomitant]
  4. LAMICTAL [Suspect]
     Dosage: 2TAB TWICE PER DAY
     Route: 048
     Dates: start: 20100210
  5. ZOLOFT [Concomitant]

REACTIONS (2)
  - RASH PRURITIC [None]
  - ERYTHEMA [None]
